FAERS Safety Report 15550650 (Version 4)
Quarter: 2019Q3

REPORT INFORMATION
  Report Type: Spontaneous
  Country: US (occurrence: US)
  Receive Date: 20181025
  Receipt Date: 20190806
  Transmission Date: 20191004
  Serious: No
  Sender: FDA-Public Use
  Company Number: US-SA-2018SA293608

PATIENT
  Age: 67 Year
  Sex: Male

DRUGS (7)
  1. PRALUENT [Suspect]
     Active Substance: ALIROCUMAB
     Indication: BLOOD CHOLESTEROL INCREASED
     Dosage: 150 MG
     Route: 058
     Dates: start: 201802
  2. PRALUENT [Suspect]
     Active Substance: ALIROCUMAB
     Dosage: 75 MG, QM
     Route: 058
     Dates: start: 2018
  3. PRALUENT [Suspect]
     Active Substance: ALIROCUMAB
     Dosage: 75 MG, QM
     Route: 058
     Dates: start: 2018
  4. ROSUVASTATIN CALCIUM. [Suspect]
     Active Substance: ROSUVASTATIN CALCIUM
     Dosage: 40 MG
  5. PRALUENT [Suspect]
     Active Substance: ALIROCUMAB
     Dosage: 75 MG, QM
     Dates: start: 201907
  6. METOPROLOL SALT NOT SPECIFIED [Suspect]
     Active Substance: METOPROLOL
  7. PRALUENT [Suspect]
     Active Substance: ALIROCUMAB
     Dosage: 75 MG, QM
     Route: 058

REACTIONS (20)
  - Asthenia [Unknown]
  - Blood cholesterol increased [Unknown]
  - Confusional state [Unknown]
  - Abdominal pain [Unknown]
  - Palpitations [Unknown]
  - Oropharyngeal pain [Unknown]
  - Musculoskeletal chest pain [Unknown]
  - Insomnia [Recovering/Resolving]
  - Hunger [Recovering/Resolving]
  - Anxiety [Unknown]
  - Blood pressure increased [Unknown]
  - Feeling abnormal [Recovering/Resolving]
  - Depression [Unknown]
  - Blood glucose decreased [Unknown]
  - Exercise tolerance decreased [Unknown]
  - Blood cholesterol decreased [Recovered/Resolved]
  - Nasopharyngitis [Unknown]
  - Pyrexia [Unknown]
  - Product use issue [Unknown]
  - Low density lipoprotein increased [Recovered/Resolved]

NARRATIVE: CASE EVENT DATE: 2018
